FAERS Safety Report 7372332-9 (Version None)
Quarter: 2011Q1

REPORT INFORMATION
  Report Type: 
  Country: None (occurrence: None)
  Receive Date: 20110324
  Receipt Date: 20110317
  Transmission Date: 20110831
  Serious: Yes (Hospitalization)
  Sender: FDA-Public Use
  Company Number: B0706498A

PATIENT
  Sex: Female

DRUGS (6)
  1. SEROPLEX [Concomitant]
  2. TAHOR [Concomitant]
  3. LEVOTHYROX [Concomitant]
  4. ZELITREX [Suspect]
     Dosage: 500MG THREE TIMES PER DAY
     Route: 048
     Dates: start: 20110207, end: 20110213
  5. MEMANTINE [Concomitant]
  6. TRAMADOL HYDROCHLORIDE [Suspect]
     Route: 048
     Dates: start: 20110209, end: 20110213

REACTIONS (4)
  - SOMNOLENCE [None]
  - RENAL FAILURE ACUTE [None]
  - VOMITING [None]
  - CONFUSIONAL STATE [None]
